FAERS Safety Report 8598254-3 (Version None)
Quarter: 2012Q3

REPORT INFORMATION
  Report Type: 
  Country: None (occurrence: None)
  Receive Date: 20120802
  Receipt Date: 20120723
  Transmission Date: 20120928
  Serious: Yes (Hospitalization)
  Sender: FDA-Public Use
  Company Number: AUR-APL-2012-03267

PATIENT
  Age: 36 Year
  Sex: Male

DRUGS (1)
  1. DIVALPROEX SODIUM [Suspect]
     Indication: SCHIZOAFFECTIVE DISORDER BIPOLAR TYPE
     Dosage: 1000 MG

REACTIONS (6)
  - COGNITIVE DISORDER [None]
  - ARRHYTHMIA [None]
  - ANTICONVULSANT DRUG LEVEL INCREASED [None]
  - AMMONIA INCREASED [None]
  - DYSARTHRIA [None]
  - SOMNOLENCE [None]
